FAERS Safety Report 7982491-2 (Version None)
Quarter: 2011Q4

REPORT INFORMATION
  Report Type: 
  Country: None (occurrence: None)
  Receive Date: 20111215
  Receipt Date: 20111007
  Transmission Date: 20120403
  Serious: Yes (Hospitalization)
  Sender: FDA-Public Use
  Company Number: NO-ROCHE-1003278

PATIENT
  Age: 43 Year
  Sex: Male
  Weight: 100 kg

DRUGS (6)
  1. ONDANSETRON [Concomitant]
     Dates: start: 20110910
  2. VEMURAFENIB [Suspect]
     Route: 048
  3. INSULATARD NPH HUMAN [Concomitant]
     Dates: start: 20110705
  4. VEMURAFENIB [Suspect]
     Indication: METASTATIC MALIGNANT MELANOMA
     Route: 048
     Dates: start: 20110906
  5. AFIPRAN [Concomitant]
     Dates: start: 20110910
  6. INSULATARD NPH HUMAN [Concomitant]
     Dates: start: 20110615

REACTIONS (2)
  - BACK PAIN [None]
  - GENERAL PHYSICAL HEALTH DETERIORATION [None]
